FAERS Safety Report 15825535 (Version 2)
Quarter: 2019Q1

REPORT INFORMATION
  Report Type: Report from Study
  Country: FR (occurrence: FR)
  Receive Date: 20190115
  Receipt Date: 20190121
  Transmission Date: 20190417
  Serious: Yes (Hospitalization, Other)
  Sender: FDA-Public Use
  Company Number: FR-ROCHE-2240539

PATIENT
  Age: 74 Year
  Sex: Female

DRUGS (4)
  1. ATEZOLIZUMAB. [Suspect]
     Active Substance: ATEZOLIZUMAB
     Indication: OVARIAN CANCER
     Dosage: ON 27/SEP/2018, SHE RECEIVED HER LAST DOSE OF ATEZOLIZUMAB BEFORE THE EVENT.
     Route: 042
     Dates: start: 20180426, end: 20180927
  2. BEVACIZUMAB. [Suspect]
     Active Substance: BEVACIZUMAB
     Indication: OVARIAN CANCER
     Dosage: ON 27/SEP/2018, SHE RECEIVED HER LAST DOSE OF BEVACIZUMAB BEFORE THE EVENT.
     Route: 042
     Dates: start: 20180426, end: 20180927
  3. CARBOPLATIN. [Suspect]
     Active Substance: CARBOPLATIN
     Indication: OVARIAN CANCER
     Dosage: (AUC = 5)?ON 13/SEP/2018, SHE RECEIVED HER LAST DOSE OF CARBOPALTIN BEFORE THE EVENT.
     Route: 042
     Dates: start: 20180426, end: 20180913
  4. PEGYLATED LIPOSOMAL DOXORUBICIN [Suspect]
     Active Substance: DOXORUBICIN
     Indication: OVARIAN CANCER
     Dosage: ON 13/SEP/2018, SHE RECEIVED HER LAST DOSE OF CHEMOTHERAPY PEGYLATED LIPOSOMAL DOXORUBICIN BEFORE T
     Route: 042
     Dates: start: 20180426, end: 20180913

REACTIONS (4)
  - Hypertension [Recovered/Resolved]
  - Pericardial effusion [Not Recovered/Not Resolved]
  - Hypothyroidism [Recovered/Resolved]
  - Thrombotic microangiopathy [Recovered/Resolved]

NARRATIVE: CASE EVENT DATE: 20181008
